FAERS Safety Report 8419306-4 (Version None)
Quarter: 2012Q2

REPORT INFORMATION
  Report Type: 
  Country: None (occurrence: None)
  Receive Date: 20120607
  Receipt Date: 20120604
  Transmission Date: 20120825
  Serious: No
  Sender: FDA-Public Use
  Company Number: US-PFIZER INC-2012134439

PATIENT
  Sex: Female
  Weight: 52.608 kg

DRUGS (20)
  1. DARIFENACIN [Suspect]
     Indication: INCONTINENCE
     Dosage: 7.5 MG, DAILY
     Dates: start: 20120501, end: 20120602
  2. TRUSOPT [Concomitant]
     Indication: PROPHYLAXIS
  3. TRUSOPT [Concomitant]
     Indication: PAPILLOEDEMA
     Dosage: UNK, 3X/DAY
  4. VOLTAREN [Concomitant]
     Indication: PROPHYLAXIS
  5. CYMBALTA [Suspect]
     Indication: AFFECTIVE DISORDER
     Dosage: 30 MG, DAILY
     Dates: start: 20110901
  6. XALATAN [Concomitant]
     Indication: PAPILLOEDEMA
     Dosage: UNK, DAILY
  7. XALATAN [Concomitant]
     Indication: PROPHYLAXIS
  8. FISH OIL [Concomitant]
     Indication: SUPPLEMENTATION THERAPY
     Dosage: 1200 MG, 2X/DAY
  9. CELEBREX [Suspect]
     Indication: ARTHRITIS
     Dosage: 100 MG, 2X/DAY
  10. ARICEPT [Concomitant]
     Indication: DEMENTIA
     Dosage: 10 MG, DAILY
     Route: 048
  11. NAMENDA [Concomitant]
     Indication: DEMENTIA
     Dosage: 10 MG, 2X/DAY
  12. BALSALAZIDE [Concomitant]
     Indication: CROHN'S DISEASE
     Dosage: 750 MG, 4X/DAY
  13. ACETYLSALICYLIC ACID [Concomitant]
     Indication: CARDIAC DISORDER
     Dosage: 81 MG, DAILY
  14. PROVENTIL [Concomitant]
     Indication: COUGH
     Dosage: UNK, AS NEEDED
  15. CALCIUM WITH VITAMIN D [Concomitant]
     Indication: SUPPLEMENTATION THERAPY
     Dosage: 600/400 IU, 2X/DAY
  16. TRAMADOL HCL [Suspect]
     Indication: ARTHRITIS
     Dosage: 60 MG, DAILY
     Dates: start: 20110801
  17. FOLIC ACID [Concomitant]
     Indication: DEMENTIA
     Dosage: 1 MG, DAILY
  18. PULMICORT [Concomitant]
     Indication: ASTHMA
     Dosage: UNK, 2X/DAY
  19. VOLTAREN [Concomitant]
     Indication: PAPILLOEDEMA
     Dosage: UNK, DAILY
  20. CORTISONE [Concomitant]
     Dosage: UNK

REACTIONS (2)
  - PRURITUS [None]
  - DRUG INEFFECTIVE [None]
